FAERS Safety Report 7672761-X (Version None)
Quarter: 2011Q3

REPORT INFORMATION
  Report Type: 
  Country: None (occurrence: None)
  Receive Date: 20110809
  Receipt Date: 20110727
  Transmission Date: 20111222
  Serious: Yes (Death, Hospitalization)
  Sender: FDA-Public Use
  Company Number: TR-WATSON-2011-12233

PATIENT

DRUGS (2)
  1. TOPIRAMATE [Suspect]
     Indication: PRODUCT USED FOR UNKNOWN INDICATION
     Dosage: 2 X 10 TABLETS OF 25 MG
     Route: 065
  2. TOPIRAMATE [Suspect]
     Dosage: 2 X 10 TABS OF 50 MG FOR 3 DAYS
     Route: 065

REACTIONS (2)
  - CARDIO-RESPIRATORY ARREST [None]
  - TOXICITY TO VARIOUS AGENTS [None]
